FAERS Safety Report 23414604 (Version 1)
Quarter: 2024Q1

REPORT INFORMATION
  Report Type: Spontaneous
  Country: CA (occurrence: CA)
  Receive Date: 20240118
  Receipt Date: 20240118
  Transmission Date: 20240410
  Serious: Yes (Life-Threatening, Hospitalization)
  Sender: FDA-Public Use
  Company Number: None

PATIENT
  Age: 46 Year
  Sex: Female
  Weight: 104 kg

DRUGS (1)
  1. SAXENDA [Suspect]
     Active Substance: LIRAGLUTIDE
     Indication: Weight control
     Dosage: 3 MG, QD
     Route: 058

REACTIONS (8)
  - Anoxia [Recovering/Resolving]
  - Cardiac arrest [Recovering/Resolving]
  - Mechanical ventilation [Recovering/Resolving]
  - Muscle twitching [Recovering/Resolving]
  - Seizure [Recovering/Resolving]
  - Syncope [Recovering/Resolving]
  - Vomiting [Recovering/Resolving]
  - Hypoglycaemia [Recovering/Resolving]
